FAERS Safety Report 25362468 (Version 1)
Quarter: 2025Q2

REPORT INFORMATION
  Report Type: Spontaneous
  Country: US (occurrence: None)
  Receive Date: 20250523
  Receipt Date: 20250523
  Transmission Date: 20250717
  Serious: No
  Sender: FDA-CTU
  Company Number: None

PATIENT
  Age: 59 Year
  Sex: Female
  Weight: 66.6 kg

DRUGS (4)
  1. REGADENOSON [Suspect]
     Active Substance: REGADENOSON
     Route: 042
     Dates: start: 20250523, end: 20250523
  2. LISINOPRIL [Concomitant]
     Active Substance: LISINOPRIL
  3. ROSUVASTATIN [Concomitant]
     Active Substance: ROSUVASTATIN
  4. REPATHA [Concomitant]
     Active Substance: EVOLOCUMAB

REACTIONS (7)
  - Palpitations [None]
  - Chest discomfort [None]
  - Limb discomfort [None]
  - Paraesthesia [None]
  - Muscle tightness [None]
  - Bruxism [None]
  - Abdominal pain [None]

NARRATIVE: CASE EVENT DATE: 20250523
